FAERS Safety Report 12242744 (Version 2)
Quarter: 2016Q4

REPORT INFORMATION
  Report Type: Report from Study
  Country: CO (occurrence: CO)
  Receive Date: 20160406
  Receipt Date: 20161212
  Transmission Date: 20170207
  Serious: Yes (Death)
  Sender: FDA-Public Use
  Company Number: CO-BAYER-2016-064318

PATIENT
  Sex: Male

DRUGS (2)
  1. BETAFERON [Suspect]
     Active Substance: INTERFERON BETA-1B
     Indication: MULTIPLE SCLEROSIS
     Dosage: UNK
  2. VENTAVIS [Suspect]
     Active Substance: ILOPROST
     Indication: HYPERTENSION
     Dosage: UNK
     Route: 045

REACTIONS (2)
  - Death [Fatal]
  - Hypertension [Fatal]

NARRATIVE: CASE EVENT DATE: 201601
